FAERS Safety Report 19642727 (Version 1)
Quarter: 2021Q3

REPORT INFORMATION
  Report Type: Spontaneous
  Country: US (occurrence: US)
  Receive Date: 20210730
  Receipt Date: 20210730
  Transmission Date: 20211014
  Serious: No
  Sender: FDA-Public Use
  Company Number: US-SEBELA IRELAND LIMITED-2021SEB00068

PATIENT
  Sex: Female

DRUGS (10)
  1. PEXEVA [Suspect]
     Active Substance: PAROXETINE MESYLATE
     Dosage: 10 MG
  2. PEXEVA [Suspect]
     Active Substance: PAROXETINE MESYLATE
     Dosage: 10 MG
  3. OREGANO. [Concomitant]
     Active Substance: OREGANO
  4. KLONOPIN [Concomitant]
     Active Substance: CLONAZEPAM
  5. TURMERIC [Concomitant]
     Active Substance: HERBALS\TURMERIC
     Dosage: ^SOMETIMES^
  6. MAGNESIUM [Concomitant]
     Active Substance: MAGNESIUM
  7. ZINC. [Concomitant]
     Active Substance: ZINC
  8. VITAMIN C [Concomitant]
     Active Substance: ASCORBIC ACID
  9. VITAMIN K [Concomitant]
     Active Substance: PHYTONADIONE
  10. VITAMIN D [Concomitant]
     Active Substance: VITAMIN D NOS

REACTIONS (2)
  - Hypoacusis [Not Recovered/Not Resolved]
  - Malaise [Not Recovered/Not Resolved]

NARRATIVE: CASE EVENT DATE: 202104
